FAERS Safety Report 7013948-9 (Version None)
Quarter: 2010Q3

REPORT INFORMATION
  Report Type: 
  Country: None (occurrence: None)
  Receive Date: 20100924
  Receipt Date: 20100916
  Transmission Date: 20110219
  Serious: Yes (Other)
  Sender: FDA-Public Use
  Company Number: FR-AMGEN-QUU440372

PATIENT
  Age: 36 Year
  Sex: Female

DRUGS (1)
  1. ENBREL [Suspect]
     Indication: PRODUCT USED FOR UNKNOWN INDICATION
     Dosage: UNKNOWN FROM AN UNSPEC. DATE; TEMPORARILY DISCONTINUED IN 2010 AND THEN RE-INTRODUCED IN 2010
     Route: 058
     Dates: end: 20100101

REACTIONS (3)
  - ANIMAL BITE [None]
  - DRUG INEFFECTIVE [None]
  - POLYMYOSITIS [None]
